FAERS Safety Report 20669380 (Version 2)
Quarter: 2022Q2

REPORT INFORMATION
  Report Type: Report from Study
  Country: US (occurrence: US)
  Receive Date: 20220404
  Receipt Date: 20220408
  Transmission Date: 20220721
  Serious: No
  Sender: FDA-Public Use
  Company Number: US-NOVARTISTESTPH-NVSC2022US075257

PATIENT
  Sex: Female

DRUGS (1)
  1. PROMACTA [Suspect]
     Active Substance: ELTROMBOPAG OLAMINE
     Indication: Aplastic anaemia
     Dosage: 150 MG (2 50 MG TABLETS IN MORNING, 1 - 50 MG TABLET IN EVENING)
     Route: 048

REACTIONS (1)
  - Inappropriate schedule of product administration [Not Recovered/Not Resolved]
